FAERS Safety Report 8988883 (Version 1)
Quarter: 2012Q4

REPORT INFORMATION
  Report Type: Spontaneous
  Country: US (occurrence: None)
  Receive Date: 20121220
  Receipt Date: 20121220
  Transmission Date: 20130627
  Serious: Yes (Other)
  Sender: FDA-Public Use
  Company Number: 2012MA014135

PATIENT
  Age: 54 Year
  Sex: Female

DRUGS (8)
  1. BUPROPION HYDROCHLORIDE [Suspect]
     Indication: DEPRESSION
     Route: 048
     Dates: start: 201211
  2. GABAPENTIN [Concomitant]
  3. LEVOTHYROXINE [Concomitant]
  4. VITAMIN D [Concomitant]
  5. LORAZEPAM [Concomitant]
  6. TRAZODONE [Concomitant]
  7. SIMVASTATIN [Concomitant]
  8. BUPROPION [Concomitant]

REACTIONS (6)
  - Product solubility abnormal [None]
  - Withdrawal syndrome [None]
  - Headache [None]
  - Nausea [None]
  - Anxiety [None]
  - Product substitution issue [None]
